FAERS Safety Report 8606270-8 (Version None)
Quarter: 2012Q3

REPORT INFORMATION
  Report Type: 
  Country: None (occurrence: None)
  Receive Date: 20120820
  Receipt Date: 20120815
  Transmission Date: 20120928
  Serious: Yes (Other)
  Sender: FDA-Public Use
  Company Number: CA-ROCHE-1103230

PATIENT
  Sex: Male
  Weight: 80.812 kg

DRUGS (4)
  1. DEXAMETHASONE [Concomitant]
  2. ZOFRAN [Concomitant]
  3. XELODA [Suspect]
     Indication: OESOPHAGEAL CARCINOMA
     Route: 048
     Dates: start: 20110501, end: 20110728
  4. CISPLATIN [Concomitant]

REACTIONS (1)
  - DISEASE PROGRESSION [None]
